FAERS Safety Report 7539251-6 (Version None)
Quarter: 2011Q2

REPORT INFORMATION
  Report Type: 
  Country: None (occurrence: None)
  Receive Date: 20110610
  Receipt Date: 20110526
  Transmission Date: 20111010
  Serious: Yes (Death, Hospitalization, Other)
  Sender: FDA-Public Use
  Company Number: US-BAYER-2011-045358

PATIENT
  Age: 57 Year
  Sex: Male

DRUGS (7)
  1. NEXAVAR [Suspect]
     Indication: HEPATIC NEOPLASM MALIGNANT
     Dosage: 400 MG, BID
     Route: 048
  2. OXALIPLATIN [Suspect]
     Indication: HEPATIC NEOPLASM MALIGNANT
  3. GEMCITABINE [Suspect]
     Indication: HEPATIC NEOPLASM MALIGNANT
  4. HYPOGLYCEMICS [Concomitant]
     Indication: TYPE 2 DIABETES MELLITUS
     Route: 048
  5. NEXAVAR [Suspect]
     Dosage: 400 MG, QD
  6. ANGIOPOIETIN INHIBITOR [Suspect]
     Indication: HEPATIC NEOPLASM MALIGNANT
     Dosage: UNK
  7. ANGIOGENESIS CONVERTING ENZYME INHIBITOR [Concomitant]
     Indication: HYPERTENSION

REACTIONS (8)
  - OESOPHAGEAL DISORDER [None]
  - HYPOTENSION [None]
  - HEPATIC NEOPLASM MALIGNANT [None]
  - ORAL DISORDER [None]
  - RENAL FAILURE [None]
  - MULTI-ORGAN FAILURE [None]
  - ARTERIOSPASM CORONARY [None]
  - EJECTION FRACTION DECREASED [None]
